FAERS Safety Report 9306898 (Version 1)
Quarter: 2013Q2

REPORT INFORMATION
  Report Type: Spontaneous
  Country: US (occurrence: US)
  Receive Date: 20130523
  Receipt Date: 20130523
  Transmission Date: 20140414
  Serious: Yes (Other)
  Sender: FDA-Public Use
  Company Number: CHPA2013US008465

PATIENT
  Age: 46 Year
  Sex: Female

DRUGS (5)
  1. EXCEDRIN EXTRA STRENGTH [Suspect]
     Indication: HEADACHE
     Dosage: UNK, UNK
     Route: 048
  2. EXCEDRIN EXTRA STRENGTH [Suspect]
     Indication: MYALGIA
  3. EXCEDRIN EXTRA STRENGTH [Suspect]
     Indication: HEADACHE
     Dosage: UNK, UNK
     Route: 048
  4. EXCEDRIN EXTRA STRENGTH [Suspect]
     Indication: MYALGIA
  5. HYDROXYZINE [Suspect]

REACTIONS (4)
  - Anaphylactic reaction [Not Recovered/Not Resolved]
  - Oesophageal spasm [Not Recovered/Not Resolved]
  - Dysphagia [Not Recovered/Not Resolved]
  - Muscle spasms [Not Recovered/Not Resolved]
